FAERS Safety Report 19503119 (Version 2)
Quarter: 2021Q3

REPORT INFORMATION
  Report Type: Report from Study
  Country: CO (occurrence: CO)
  Receive Date: 20210707
  Receipt Date: 20210721
  Transmission Date: 20211014
  Serious: Yes (Other)
  Sender: FDA-Public Use
  Company Number: CO-ASTELLAS-2020US017547

PATIENT
  Age: 54 Year
  Sex: Male
  Weight: 58 kg

DRUGS (4)
  1. MYCOPHENOLATE [Concomitant]
     Active Substance: MYCOPHENOLIC ACID
     Indication: PRODUCT USED FOR UNKNOWN INDICATION
     Dosage: 180MG IN THE MORNING, 360MG AT NIGHT, UNKNOWN FREQ.
     Route: 048
     Dates: start: 201507
  2. TACROLIMUS. [Suspect]
     Active Substance: TACROLIMUS
     Indication: RENAL TRANSPLANT
     Dosage: 5 MG (5 CAPSULES OF 1MG), ONCE DAILY
     Route: 048
     Dates: start: 20150720, end: 20200512
  3. TACROLIMUS. [Suspect]
     Active Substance: TACROLIMUS
     Dosage: 1 MG OR 2MG, ONCE DAILY
     Route: 048
     Dates: start: 20200513
  4. TACROLIMUS. [Suspect]
     Active Substance: TACROLIMUS
     Dosage: 5 MG (1 MG CAPSULE), ONCE DAILY (EVERY 24 HOURS)
     Route: 048
     Dates: start: 20200530

REACTIONS (9)
  - Back pain [Recovered/Resolved]
  - COVID-19 [Recovered/Resolved]
  - Chills [Recovered/Resolved]
  - Ageusia [Recovered/Resolved]
  - Product availability issue [Unknown]
  - Product supply issue [Unknown]
  - Renal pain [Recovering/Resolving]
  - Anosmia [Recovered/Resolved]
  - Pyrexia [Recovered/Resolved]

NARRATIVE: CASE EVENT DATE: 20200513
